FAERS Safety Report 7082970-9 (Version None)
Quarter: 2010Q4

REPORT INFORMATION
  Report Type: 
  Country: None (occurrence: None)
  Receive Date: 20101026
  Receipt Date: 20101011
  Transmission Date: 20110411
  Serious: Yes (Life-Threatening, Hospitalization, Disabling)
  Sender: FDA-Public Use
  Company Number: 2010DE0030

PATIENT
  Age: 4 Year
  Sex: Male

DRUGS (1)
  1. ORFADIN [Suspect]
     Indication: TYROSINAEMIA
     Dosage: 21 MG (21 MG,1 IN 1 D)
     Dates: start: 20060101

REACTIONS (6)
  - APNOEA [None]
  - BRONCHITIS [None]
  - DIARRHOEA [None]
  - POLYNEUROPATHY [None]
  - RESPIRATORY MUSCLE WEAKNESS [None]
  - TREATMENT NONCOMPLIANCE [None]
